FAERS Safety Report 19035956 (Version 1)
Quarter: 2021Q1

REPORT INFORMATION
  Report Type: Spontaneous
  Country: US (occurrence: US)
  Receive Date: 20210321
  Receipt Date: 20210321
  Transmission Date: 20210420
  Serious: No
  Sender: FDA-Public Use
  Company Number: US-ASTRAZENECA-2021A124283

PATIENT
  Sex: Male
  Weight: 127 kg

DRUGS (2)
  1. BYDUREON BCISE [Suspect]
     Active Substance: EXENATIDE
     Indication: DIABETES MELLITUS
     Route: 065
     Dates: start: 20210301
  2. BYDUREON [Suspect]
     Active Substance: EXENATIDE
     Indication: DIABETES MELLITUS
     Dosage: UNKNOWN
     Route: 065

REACTIONS (4)
  - Incorrect dose administered by device [Unknown]
  - Device leakage [Unknown]
  - Wrong technique in device usage process [Unknown]
  - Memory impairment [Unknown]
